FAERS Safety Report 9274878 (Version 1)
Quarter: 2013Q2

REPORT INFORMATION
  Report Type: Spontaneous
  Country: US (occurrence: US)
  Receive Date: 20130507
  Receipt Date: 20130507
  Transmission Date: 20140414
  Serious: Yes (Hospitalization)
  Sender: FDA-Public Use
  Company Number: US-BAYER-2013-054834

PATIENT
  Age: 22 Year
  Sex: Female
  Weight: 58 kg

DRUGS (6)
  1. YAZ [Suspect]
  2. BEYAZ [Suspect]
  3. SERTRALINE [Concomitant]
  4. NAPROXEN [Concomitant]
  5. NORCO [Concomitant]
  6. LORAZEPAM [Concomitant]

REACTIONS (1)
  - Pulmonary embolism [None]
